FAERS Safety Report 18079239 (Version 1)
Quarter: 2020Q3

REPORT INFORMATION
  Report Type: Spontaneous
  Country: US (occurrence: US)
  Receive Date: 20200727
  Receipt Date: 20200727
  Transmission Date: 20201103
  Serious: Yes (Other)
  Sender: FDA-Public Use
  Company Number: None

PATIENT
  Age: 59 Year
  Sex: Male

DRUGS (6)
  1. VOTRIENT [Suspect]
     Active Substance: PAZOPANIB HYDROCHLORIDE
     Indication: RENAL CANCER
     Route: 048
  2. ALPRAZOLAM 2MG TAB [Concomitant]
  3. ASPIRIN 81MG EC TAB [Concomitant]
  4. OXYCODONE/APAP 10/325MG TAB [Concomitant]
  5. TAMSULOSIN 0.4MG CAP [Concomitant]
     Active Substance: TAMSULOSIN
  6. MULTIVITAMIN [Concomitant]
     Active Substance: VITAMINS

REACTIONS (3)
  - Joint swelling [None]
  - Rash [None]
  - Rash erythematous [None]
